FAERS Safety Report 21170089 (Version 4)
Quarter: 2022Q3

REPORT INFORMATION
  Report Type: Report from Study
  Country: EG (occurrence: EG)
  Receive Date: 20220804
  Receipt Date: 20220917
  Transmission Date: 20221027
  Serious: Yes (Other)
  Sender: FDA-Public Use
  Company Number: EG-JNJFOC-20220736226

PATIENT
  Age: 39 Year
  Sex: Female

DRUGS (6)
  1. ESKETAMINE [Suspect]
     Active Substance: ESKETAMINE
     Indication: Depression
     Dosage: 3 SPRAVATO DEVICES FOR CYCLE 1 (06-JUL-2022)
     Dates: start: 20220706, end: 20220706
  2. ESKETAMINE [Suspect]
     Active Substance: ESKETAMINE
     Dosage: 2 DEVICES FOR CYCLE 2 (ON 10_JUL_2022)
     Dates: start: 20220710, end: 20220710
  3. ESKETAMINE [Suspect]
     Active Substance: ESKETAMINE
     Dosage: AND CYCLE NUMBER 3 ON (13-JUL-2022)
     Dates: start: 20220713, end: 20220713
  4. ESKETAMINE [Suspect]
     Active Substance: ESKETAMINE
     Dates: start: 20220724
  5. ESKETAMINE [Suspect]
     Active Substance: ESKETAMINE
     Dosage: SESSION NUMBER: 7
     Dates: start: 20220803, end: 20220803
  6. ESKETAMINE [Suspect]
     Active Substance: ESKETAMINE
     Dosage: CYCLE NUMBER: 8
     Dates: start: 20220807, end: 20220807

REACTIONS (4)
  - Suicidal ideation [Recovered/Resolved]
  - Anxiety [Recovered/Resolved]
  - Product dose omission issue [Unknown]
  - Vomiting [Recovered/Resolved]

NARRATIVE: CASE EVENT DATE: 20220701
